FAERS Safety Report 15179585 (Version 1)
Quarter: 2018Q3

REPORT INFORMATION
  Report Type: Spontaneous
  Country: US (occurrence: US)
  Receive Date: 20180622
  Receipt Date: 20180622
  Transmission Date: 20181010
  Serious: Yes (Other)
  Sender: FDA-Public Use
  Company Number: None

PATIENT
  Age: 65 Year
  Sex: Female
  Weight: 60.75 kg

DRUGS (10)
  1. EZETIMIBE. [Concomitant]
     Active Substance: EZETIMIBE
  2. FLUTICASONE PROPIONATE NASAL SPRAY 50 MCG [Suspect]
     Active Substance: FLUTICASONE PROPIONATE
     Indication: HYPERSENSITIVITY
     Dosage: ?          QUANTITY:1 DF DOSAGE FORM;?
     Route: 045
     Dates: start: 20171228, end: 20180622
  3. LEVOTHYROXINE. [Concomitant]
     Active Substance: LEVOTHYROXINE
  4. ENALAPRIL [Concomitant]
     Active Substance: ENALAPRIL
  5. FLUTICASONE. [Concomitant]
     Active Substance: FLUTICASONE
  6. LEVOCETIRIZINE [Concomitant]
     Active Substance: LEVOCETIRIZINE
  7. CHOLECALCIFEROL [Concomitant]
     Active Substance: CHOLECALCIFEROL
  8. ASPIRIN. [Concomitant]
     Active Substance: ASPIRIN
  9. BENZONATATE. [Concomitant]
     Active Substance: BENZONATATE
  10. AMLODIPINE [Concomitant]
     Active Substance: AMLODIPINE BESYLATE

REACTIONS (3)
  - Lacrimation increased [None]
  - Epistaxis [None]
  - Eye pruritus [None]

NARRATIVE: CASE EVENT DATE: 20180107
